FAERS Safety Report 12552664 (Version 1)
Quarter: 2016Q3

REPORT INFORMATION
  Report Type: Spontaneous
  Country: FR (occurrence: FR)
  Receive Date: 20160713
  Receipt Date: 20160713
  Transmission Date: 20161109
  Serious: Yes (Hospitalization)
  Sender: FDA-Public Use
  Company Number: FR-TEVA-673713ISR

PATIENT
  Age: 17 Year
  Sex: Female

DRUGS (7)
  1. HOLOXAN [Suspect]
     Active Substance: IFOSFAMIDE
     Indication: OSTEOSARCOMA
     Dosage: FIRST COURSE OF VP16-IFOSFAMIDE
     Route: 041
     Dates: start: 20090626, end: 20090629
  2. VOGALENE [Suspect]
     Active Substance: METOPIMAZINE
     Indication: ANTIEMETIC SUPPORTIVE CARE
     Dosage: FIRST COURSE OF VP16-IFOSFAMIDE
     Route: 042
     Dates: start: 20090626, end: 20090628
  3. EMEND [Suspect]
     Active Substance: APREPITANT
     Route: 048
     Dates: start: 20090801, end: 20090801
  4. ZOPHREN [Suspect]
     Active Substance: ONDANSETRON
  5. METHOTREXATE. [Concomitant]
     Active Substance: METHOTREXATE
     Indication: OSTEOSARCOMA
     Dosage: HIGH DOSE - 1ST COURSE
     Dates: start: 20160603
  6. ETOPOSIDE. [Suspect]
     Active Substance: ETOPOSIDE
     Indication: OSTEOSARCOMA
     Dosage: FIRST COURSE OF VP16-IFOSFAMIDE
     Route: 041
     Dates: start: 20090626, end: 20090629
  7. CORTICOSTEROIDS NOS [Concomitant]
     Active Substance: UNSPECIFIED INGREDIENT

REACTIONS (3)
  - Tremor [Recovered/Resolved]
  - Myoclonus [Recovered/Resolved]
  - Feeling abnormal [Recovered/Resolved]

NARRATIVE: CASE EVENT DATE: 20090627
